FAERS Safety Report 6573146-X (Version None)
Quarter: 2010Q1

REPORT INFORMATION
  Report Type: 
  Country: None (occurrence: None)
  Receive Date: 20100208
  Receipt Date: 20100125
  Transmission Date: 20100710
  Serious: Yes (Other)
  Sender: FDA-Public Use
  Company Number: US-ELI_LILLY_AND_COMPANY-US200912004910

PATIENT
  Sex: Female

DRUGS (1)
  1. FORTEO [Suspect]
     Dates: start: 20080801

REACTIONS (4)
  - DEVICE DISLOCATION [None]
  - FEMUR FRACTURE [None]
  - IMPAIRED HEALING [None]
  - PAIN [None]
